FAERS Safety Report 23111961 (Version 4)
Quarter: 2023Q4

REPORT INFORMATION
  Report Type: Spontaneous
  Country: US (occurrence: US)
  Receive Date: 20231026
  Receipt Date: 20231222
  Transmission Date: 20240110
  Serious: Yes (Death, Other)
  Sender: FDA-Public Use
  Company Number: US-PFIZER INC-PV202300155313

PATIENT
  Age: 71 Year
  Sex: Female
  Weight: 49.887 kg

DRUGS (1)
  1. BRAFTOVI [Suspect]
     Active Substance: ENCORAFENIB
     Indication: Colon cancer
     Dosage: 300 MG, 1X/DAY (75 MG 4 CAP 1XDAY)
     Route: 048
     Dates: start: 202306, end: 202308

REACTIONS (1)
  - Death [Fatal]

NARRATIVE: CASE EVENT DATE: 20230801
